FAERS Safety Report 4336992-9 (Version None)
Quarter: 2004Q1

REPORT INFORMATION
  Report Type: 
  Country: None (occurrence: None)
  Receive Date: 20040329
  Receipt Date: 20040119
  Transmission Date: 20041129
  Serious: No
  Sender: FDA-Public Use
  Company Number: USA040157006

PATIENT
  Age: 28 Year
  Sex: Male

DRUGS (6)
  1. STRATTERA [Suspect]
     Indication: ANXIETY
     Dosage: 80 MG/DAY
     Dates: start: 20040115
  2. STRATTERA [Suspect]
     Indication: ATTENTION DEFICIT/HYPERACTIVITY DISORDER
     Dosage: 80 MG/DAY
     Dates: start: 20040115
  3. STRATTERA [Suspect]
     Indication: PANIC ATTACK
     Dosage: 80 MG/DAY
     Dates: start: 20040115
  4. PROZAC [Concomitant]
  5. NEURONTIN [Concomitant]
  6. CAFFEINE [Concomitant]

REACTIONS (5)
  - ERYTHEMA [None]
  - HEART RATE INCREASED [None]
  - INSOMNIA [None]
  - MYDRIASIS [None]
  - TREMOR [None]
